FAERS Safety Report 7806926-0 (Version None)
Quarter: 2011Q4

REPORT INFORMATION
  Report Type: 
  Country: None (occurrence: None)
  Receive Date: 20111011
  Receipt Date: 20101105
  Transmission Date: 20120403
  Serious: No
  Sender: FDA-Public Use
  Company Number: US-MYLANLABS-2010S1019173

PATIENT
  Age: 42 Year
  Sex: Female
  Weight: 70.76 kg

DRUGS (1)
  1. MIDODRINE HYDROCHLORIDE [Suspect]
     Indication: HYPOTENSION
     Route: 048
     Dates: start: 20100913, end: 20100918

REACTIONS (4)
  - HEADACHE [None]
  - NAUSEA [None]
  - DIZZINESS [None]
  - SENSATION OF PRESSURE [None]
